FAERS Safety Report 18338175 (Version 1)
Quarter: 2020Q4

REPORT INFORMATION
  Report Type: Spontaneous
  Country: US (occurrence: US)
  Receive Date: 20201001
  Receipt Date: 20201001
  Transmission Date: 20210113
  Serious: No
  Sender: FDA-Public Use
  Company Number: None

PATIENT
  Sex: Male

DRUGS (1)
  1. DRONABINOL 2.5MG CAPSULES [Suspect]
     Active Substance: DRONABINOL

REACTIONS (1)
  - Hospitalisation [None]
